FAERS Safety Report 6143290-X (Version None)
Quarter: 2009Q2

REPORT INFORMATION
  Report Type: 
  Country: None (occurrence: None)
  Receive Date: 20090403
  Receipt Date: 20090326
  Transmission Date: 20091009
  Serious: Yes (Other)
  Sender: FDA-Public Use
  Company Number: A0765151A

PATIENT
  Age: 25 Year
  Sex: Female

DRUGS (2)
  1. LEXIVA [Suspect]
     Indication: ANTIVIRAL TREATMENT
     Dosage: 4TAB PER DAY
     Route: 048
     Dates: start: 20081027
  2. TRUVADA [Suspect]
     Indication: ANTIVIRAL TREATMENT
     Dosage: 1TAB PER DAY
     Route: 048
     Dates: start: 20081027

REACTIONS (6)
  - ABDOMINAL INJURY [None]
  - ABORTION SPONTANEOUS [None]
  - DRUG EXPOSURE DURING PREGNANCY [None]
  - HAEMORRHAGE FOETAL [None]
  - INTRA-UTERINE DEATH [None]
  - ULTRASOUND ANTENATAL SCREEN ABNORMAL [None]
